FAERS Safety Report 7082509-8 (Version None)
Quarter: 2010Q4

REPORT INFORMATION
  Report Type: 
  Country: None (occurrence: None)
  Receive Date: 20101026
  Receipt Date: 20101013
  Transmission Date: 20110411
  Serious: Yes (Death, Hospitalization, Other)
  Sender: FDA-Public Use
  Company Number: 724532

PATIENT
  Age: 67 Year
  Sex: Female

DRUGS (15)
  1. HEPARIN SODIUM [Suspect]
     Indication: ACTIVATED PARTIAL THROMBOPLASTIN TIME
     Dosage: VARIABLE RATE, INTRAVENOUS DRIP
     Route: 041
     Dates: start: 20070514, end: 20070521
  2. HEPARIN SODIUM [Suspect]
     Indication: INTRAVENOUS CATHETER MANAGEMENT
     Dosage: 100 UNITS/ML, INTRAVENOUS
     Route: 042
     Dates: start: 20070501, end: 20070101
  3. HEPARIN SODIUM [Suspect]
     Indication: PRODUCT USED FOR UNKNOWN INDICATION
     Dosage: 5000 UNITS/ML, EVERY 12 HOURS, SUBCUTANEOUS
     Route: 058
     Dates: start: 20070501, end: 20070101
  4. ADVAIR DISKUS 100/50 [Concomitant]
  5. ALLOPURINOL [Concomitant]
  6. (CALCIUM) [Concomitant]
  7. CRESTOR [Concomitant]
  8. (DIGITEK) [Concomitant]
  9. (FERROUS GLUCONATE) [Concomitant]
  10. GEMFIBROZIL [Concomitant]
  11. LEXAPRO [Concomitant]
  12. NEXIUM [Concomitant]
  13. KLOR-CON [Concomitant]
  14. (TORASEMIDE) [Concomitant]
  15. COUMADIN [Concomitant]

REACTIONS (16)
  - ACTIVATED PARTIAL THROMBOPLASTIN TIME PROLONGED [None]
  - ASCITES [None]
  - BALANCE DISORDER [None]
  - CARDIAC FAILURE CONGESTIVE [None]
  - CARDIO-RESPIRATORY ARREST [None]
  - DECREASED APPETITE [None]
  - HYPERSENSITIVITY [None]
  - INTERNATIONAL NORMALISED RATIO DECREASED [None]
  - LETHARGY [None]
  - MULTI-ORGAN FAILURE [None]
  - NAUSEA [None]
  - PROTHROMBIN TIME PROLONGED [None]
  - PULMONARY ALVEOLAR HAEMORRHAGE [None]
  - PULMONARY HYPERTENSION [None]
  - RESPIRATORY FAILURE [None]
  - UNRESPONSIVE TO STIMULI [None]
